FAERS Safety Report 8911719 (Version 1)
Quarter: 2012Q4

REPORT INFORMATION
  Report Type: 
  Country: NO (occurrence: NO)
  Receive Date: 20121115
  Receipt Date: 20121115
  Transmission Date: 20130627
  Serious: Yes (Other)
  Sender: FDA-Public Use
  Company Number: NO-WATSON-2012-19106

PATIENT

DRUGS (3)
  1. MYCOPHENOLATE MOFETIL (UNKNOWN) [Suspect]
     Indication: LUNG TRANSPLANT
  2. PREDNISOLONE (UNKNOWN) [Suspect]
     Indication: IMMUNOSUPPRESSION
  3. TACROLIMUS (UNKNOWN) [Suspect]
     Indication: IMMUNOSUPPRESSION

REACTIONS (2)
  - Chronic graft versus host disease [Unknown]
  - Obliterative bronchiolitis [Unknown]
